FAERS Safety Report 9897184 (Version 1)
Quarter: 2014Q1

REPORT INFORMATION
  Report Type: Report from Study
  Country: NL (occurrence: NL)
  Receive Date: 20140214
  Receipt Date: 20140214
  Transmission Date: 20141002
  Serious: Yes (Hospitalization)
  Sender: FDA-Public Use
  Company Number: NL-ABBVIE-14P-114-1199304-00

PATIENT
  Age: 46 Year
  Sex: Female
  Weight: 60 kg

DRUGS (3)
  1. LUCRIN DEPOT [Suspect]
     Indication: UTERINE LEIOMYOMA
     Route: 058
     Dates: start: 20131111, end: 20131111
  2. DICLOFENAC SODIUM [Concomitant]
     Indication: PAIN
     Route: 048
  3. PARACETAMOL [Concomitant]
     Indication: PAIN
     Route: 048

REACTIONS (2)
  - Hysterectomy [Recovered/Resolved]
  - Hot flush [Recovering/Resolving]
